FAERS Safety Report 8900783 (Version 1)
Quarter: 2012Q4

REPORT INFORMATION
  Report Type: 
  Country: US (occurrence: US)
  Receive Date: 20121109
  Receipt Date: 20121109
  Transmission Date: 20130627
  Serious: Yes (Other)
  Sender: FDA-Public Use
  Company Number: US-TEVA-368871USA

PATIENT
  Sex: Male

DRUGS (1)
  1. PROAIR HFA [Suspect]
     Indication: DYSPNOEA
     Route: 055
     Dates: start: 2010

REACTIONS (2)
  - Pain [Recovering/Resolving]
  - Back pain [Recovering/Resolving]
